FAERS Safety Report 9166498 (Version 1)
Quarter: 2013Q1

REPORT INFORMATION
  Report Type: Spontaneous
  Country: BR (occurrence: BR)
  Receive Date: 20130315
  Receipt Date: 20130315
  Transmission Date: 20140127
  Serious: Yes (Other)
  Sender: FDA-Public Use
  Company Number: BR-PFIZER INC-2013081837

PATIENT
  Age: 79 Year
  Sex: Male
  Weight: 72 kg

DRUGS (3)
  1. XALATAN [Suspect]
     Indication: INTRAOCULAR PRESSURE INCREASED
     Dosage: 1.5 UG (ONE DROP IN ONE EYE), 1X/DAY
     Route: 047
     Dates: start: 20000818, end: 2011
  2. GLIFAGE [Concomitant]
     Indication: DIABETES MELLITUS
     Dosage: 2 TABLETS DAILY
     Dates: start: 2008
  3. LOSARTAN [Concomitant]
     Indication: HYPERTENSION
     Dosage: 1 DF, 2X/DAY
     Dates: start: 2009

REACTIONS (3)
  - Glaucoma [Unknown]
  - Cataract [Unknown]
  - Hearing impaired [Not Recovered/Not Resolved]
